FAERS Safety Report 7491165-6 (Version None)
Quarter: 2011Q2

REPORT INFORMATION
  Report Type: 
  Country: None (occurrence: None)
  Receive Date: 20110519
  Receipt Date: 20110513
  Transmission Date: 20111010
  Serious: Yes (Other)
  Sender: FDA-Public Use
  Company Number: JP-ROCHE-777566

PATIENT
  Age: 80 Year
  Sex: Male

DRUGS (1)
  1. AVASTIN [Suspect]
     Indication: COLON CANCER
     Route: 041
     Dates: start: 20110426, end: 20110510

REACTIONS (2)
  - RESPIRATORY FAILURE [None]
  - ENCEPHALOPATHY [None]
